FAERS Safety Report 8188353-2 (Version None)
Quarter: 2012Q1

REPORT INFORMATION
  Report Type: 
  Country: None (occurrence: None)
  Receive Date: 20120306
  Receipt Date: 20120228
  Transmission Date: 20120608
  Serious: Yes (Other)
  Sender: FDA-Public Use
  Company Number: US-NOVOPROD-345917

PATIENT
  Age: 4 Year
  Sex: Male
  Weight: 14.5 kg

DRUGS (1)
  1. NORDITROPIN FLEXPRO [Suspect]
     Indication: SMALL FOR DATES BABY
     Dosage: 0.6 MG, QD
     Route: 058
     Dates: start: 20110901

REACTIONS (3)
  - AGGRESSION [None]
  - EMOTIONAL DISORDER [None]
  - TONSILLAR HYPERTROPHY [None]
